FAERS Safety Report 6831241-1 (Version None)
Quarter: 2010Q3

REPORT INFORMATION
  Report Type: 
  Country: None (occurrence: None)
  Receive Date: 20100712
  Receipt Date: 20100706
  Transmission Date: 20110219
  Serious: Yes (Hospitalization)
  Sender: FDA-Public Use
  Company Number: GB-BRISTOL-MYERS SQUIBB COMPANY-15183510

PATIENT
  Age: 4 Decade
  Sex: Female

DRUGS (3)
  1. ABILIFY [Suspect]
     Indication: BIPOLAR DISORDER
     Dosage: 20MG,SEP09 TO SEP09,.  SEP09 TO 03JUN10,10+15MG,ORAL DISPERSIBLE
     Route: 048
     Dates: start: 20090901, end: 20100603
  2. ABILIFY [Suspect]
     Indication: BIPOLAR DISORDER
     Dosage: FORM:IM SOLUTION
     Route: 030
     Dates: start: 20090901, end: 20090901
  3. DIAZEPAM [Concomitant]
     Indication: BIPOLAR DISORDER
     Route: 048
     Dates: start: 20090901, end: 20091201

REACTIONS (5)
  - AGGRESSION [None]
  - AGITATION [None]
  - DYSTONIA [None]
  - MUSCLE SPASMS [None]
  - RESTLESS LEGS SYNDROME [None]
